FAERS Safety Report 9894185 (Version 2)
Quarter: 2014Q1

REPORT INFORMATION
  Report Type: Spontaneous
  Country: LV (occurrence: LV)
  Receive Date: 20140213
  Receipt Date: 20140217
  Transmission Date: 20141002
  Serious: Yes (Other)
  Sender: FDA-Public Use
  Company Number: LV-GILEAD-2014-0094234

PATIENT
  Age: 70 Year
  Sex: Female
  Weight: 80 kg

DRUGS (3)
  1. AMBRISENTAN [Suspect]
     Indication: PULMONARY ARTERIAL HYPERTENSION
     Dosage: 5 MG, QD
     Route: 048
     Dates: start: 201401, end: 201401
  2. AMBRISENTAN [Suspect]
     Dosage: 2.5 MG, QD
     Route: 048
     Dates: start: 201401, end: 201401
  3. METOPROLOL [Concomitant]

REACTIONS (3)
  - Oedema peripheral [Recovered/Resolved]
  - Pain in extremity [Recovered/Resolved]
  - Weight increased [Recovered/Resolved]
